FAERS Safety Report 10084053 (Version 1)
Quarter: 2014Q2

REPORT INFORMATION
  Report Type: Spontaneous
  Country: PL (occurrence: PL)
  Receive Date: 20140417
  Receipt Date: 20140417
  Transmission Date: 20141212
  Serious: Yes (Death)
  Sender: FDA-Public Use
  Company Number: PL-BIOMARINAP-PL-2014-103033

PATIENT
  Sex: Male
  Weight: 24.9 kg

DRUGS (1)
  1. ALDURAZYME [Suspect]
     Indication: MUCOPOLYSACCHARIDOSIS I
     Dosage: 100.4 IU/KG, QW
     Route: 042
     Dates: start: 20070208, end: 20140328

REACTIONS (3)
  - Pneumonia [Fatal]
  - Cardiac arrest [Not Recovered/Not Resolved]
  - Apnoea [Not Recovered/Not Resolved]
